FAERS Safety Report 24779211 (Version 2)
Quarter: 2025Q1

REPORT INFORMATION
  Report Type: Spontaneous
  Country: GB (occurrence: GB)
  Receive Date: 20241226
  Receipt Date: 20250103
  Transmission Date: 20250408
  Serious: Yes (Hospitalization)
  Sender: DR REDDYS
  Company Number: None

PATIENT
  Sex: Female

DRUGS (13)
  1. CHLORPROMAZINE [Suspect]
     Active Substance: CHLORPROMAZINE
     Indication: Schizophrenia
     Dosage: 25 MG BD
  2. CHLORPROMAZINE [Suspect]
     Active Substance: CHLORPROMAZINE
     Indication: Aggression
  3. RISPERIDONE [Suspect]
     Active Substance: RISPERIDONE
     Indication: Schizophrenia
  4. RISPERIDONE [Suspect]
     Active Substance: RISPERIDONE
     Indication: Aggression
  5. DIAZEPAM [Suspect]
     Active Substance: DIAZEPAM
     Indication: Schizophrenia
     Dosage: 5 MG OM, 5 MG AFTERNOON AND 10 MG EVENING
  6. DIAZEPAM [Suspect]
     Active Substance: DIAZEPAM
     Indication: Aggression
  7. PROCYCLIDINE [Suspect]
     Active Substance: PROCYCLIDINE
     Indication: Schizophrenia
  8. PROCYCLIDINE [Suspect]
     Active Substance: PROCYCLIDINE
     Indication: Aggression
  9. PROMETHAZINE [Suspect]
     Active Substance: PROMETHAZINE HYDROCHLORIDE
     Indication: Schizophrenia
     Dosage: 25 MG OD PRN?AS NEEDED
  10. PROMETHAZINE [Suspect]
     Active Substance: PROMETHAZINE HYDROCHLORIDE
     Indication: Aggression
  11. MIDAZOLAM [Suspect]
     Active Substance: MIDAZOLAM
     Indication: Schizophrenia
     Route: 002
  12. MIDAZOLAM [Suspect]
     Active Substance: MIDAZOLAM
     Indication: Aggression
  13. TAMOXIFEN [Concomitant]
     Active Substance: TAMOXIFEN
     Indication: Product used for unknown indication

REACTIONS (1)
  - Movement disorder [Unknown]
